FAERS Safety Report 4888010-1 (Version None)
Quarter: 2006Q1

REPORT INFORMATION
  Report Type: 
  Country: None (occurrence: None)
  Receive Date: 20060123
  Receipt Date: 20051005
  Transmission Date: 20060701
  Serious: Yes (Death, Hospitalization)
  Sender: FDA-Public Use
  Company Number: US-MERCK-0510USA03395

PATIENT
  Age: 88 Year
  Sex: Female
  Weight: 64 kg

DRUGS (5)
  1. VIOXX [Suspect]
     Indication: CHEST PAIN
     Route: 048
     Dates: start: 20010116, end: 20010613
  2. SYNTHROID [Concomitant]
     Route: 065
  3. IMDUR [Concomitant]
     Route: 065
  4. CARDIZEM [Concomitant]
     Route: 065
  5. [THERAPY UNSPECIFIED] [Concomitant]
     Route: 065

REACTIONS (11)
  - CARDIAC ARREST [None]
  - CARDIAC FAILURE CONGESTIVE [None]
  - CORONARY ARTERY DISEASE [None]
  - INTERMITTENT CLAUDICATION [None]
  - MYOCARDIAL INFARCTION [None]
  - RESPIRATORY ARREST [None]
  - RESPIRATORY DISTRESS [None]
  - RESPIRATORY FAILURE [None]
  - SINUS BRADYCARDIA [None]
  - SUPRAVENTRICULAR TACHYCARDIA [None]
  - VENTRICULAR FIBRILLATION [None]
